FAERS Safety Report 7441859-3 (Version None)
Quarter: 2011Q2

REPORT INFORMATION
  Report Type: 
  Country: None (occurrence: None)
  Receive Date: 20110428
  Receipt Date: 20110419
  Transmission Date: 20111010
  Serious: Yes (Other)
  Sender: FDA-Public Use
  Company Number: CH-ELI_LILLY_AND_COMPANY-CH201104000370

PATIENT
  Age: 60 Year
  Sex: Female

DRUGS (15)
  1. PREGABALIN [Concomitant]
     Dosage: 100 MG, QD
  2. OLANZAPINE [Suspect]
     Dosage: 5 MG, QD
  3. LORAZEPAM [Concomitant]
     Dosage: 3 MG, QD
     Route: 048
     Dates: start: 20100201
  4. LORAZEPAM [Concomitant]
     Dosage: 2.5 MG, QD
  5. LORAZEPAM [Concomitant]
     Dosage: 1.5 MG, QD
  6. OLANZAPINE [Suspect]
     Dosage: 10 MG, QD
  7. OLANZAPINE [Suspect]
     Dosage: 2.5 MG, QD
     Dates: end: 20100420
  8. QUETIAPINE [Concomitant]
  9. PREGABALIN [Concomitant]
     Dosage: 25 MG, QD
  10. DULOXETINE HYDROCHLORIDE [Suspect]
     Dosage: 120 MG, QD
  11. LORAZEPAM [Concomitant]
     Dosage: 3 MG, QD
  12. OLANZAPINE [Suspect]
     Dosage: 5 MG, QD
     Route: 048
     Dates: start: 20091101
  13. DULOXETINE HYDROCHLORIDE [Suspect]
     Dosage: 60 MG, QD
  14. ZOLPIDEM [Concomitant]
     Indication: DEPRESSION
     Dosage: 12.5 MG, QD
     Route: 048
     Dates: start: 20091101
  15. PREGABALIN [Concomitant]
     Dosage: 150 MG, QD
     Route: 048
     Dates: start: 20100201

REACTIONS (7)
  - DRUG WITHDRAWAL SYNDROME [None]
  - WEIGHT INCREASED [None]
  - MENTAL STATUS CHANGES [None]
  - SEROTONIN SYNDROME [None]
  - GENERAL PHYSICAL HEALTH DETERIORATION [None]
  - OFF LABEL USE [None]
  - DRUG INEFFECTIVE [None]
